FAERS Safety Report 5926380-3 (Version None)
Quarter: 2008Q4

REPORT INFORMATION
  Report Type: 
  Country: None (occurrence: None)
  Receive Date: 20081022
  Receipt Date: 20081016
  Transmission Date: 20090506
  Serious: Yes (Other)
  Sender: FDA-Public Use
  Company Number: GB-TEVA-178926ISR

PATIENT
  Age: 2 Year
  Sex: Female

DRUGS (2)
  1. PREDNISOLONE [Suspect]
     Route: 048
     Dates: start: 20060701
  2. METHOTREXATE [Suspect]
     Route: 048
     Dates: start: 20060526

REACTIONS (8)
  - ARTHRALGIA [None]
  - BALANCE DISORDER [None]
  - DECREASED ACTIVITY [None]
  - ECZEMA [None]
  - FALL [None]
  - JUVENILE ARTHRITIS [None]
  - MOUTH ULCERATION [None]
  - PAIN IN EXTREMITY [None]
